FAERS Safety Report 12934022 (Version 1)
Quarter: 2016Q4

REPORT INFORMATION
  Report Type: Spontaneous
  Country: US (occurrence: US)
  Receive Date: 20161111
  Receipt Date: 20161111
  Transmission Date: 20170207
  Serious: No
  Sender: FDA-Public Use
  Company Number: US-BAYER-2016-209197

PATIENT
  Age: 58 Year
  Sex: Female

DRUGS (2)
  1. CLIMARA [Suspect]
     Active Substance: ESTRADIOL
     Indication: OESTROGEN THERAPY
     Dosage: 0.05 MG, OW
     Route: 062
  2. CLIMARA [Suspect]
     Active Substance: ESTRADIOL
     Indication: OESTROGEN THERAPY
     Dosage: UNK
     Route: 062

REACTIONS (2)
  - Drug administration error [Not Recovered/Not Resolved]
  - Product adhesion issue [Not Recovered/Not Resolved]

NARRATIVE: CASE EVENT DATE: 2016
